FAERS Safety Report 9752620 (Version 1)
Quarter: 2013Q4

REPORT INFORMATION
  Report Type: Spontaneous
  Country: US (occurrence: None)
  Receive Date: 20131211
  Receipt Date: 20131211
  Transmission Date: 20140711
  Serious: No
  Sender: FDA-Public Use
  Company Number: None

PATIENT
  Age: 65 Year
  Sex: Female
  Weight: 75.45 kg

DRUGS (1)
  1. PACLITAXEL (TAXOL) [Suspect]

REACTIONS (4)
  - Infusion related reaction [None]
  - Paraesthesia [None]
  - Hypoaesthesia [None]
  - Loss of consciousness [None]
